FAERS Safety Report 6335617-0 (Version None)
Quarter: 2009Q3

REPORT INFORMATION
  Report Type: 
  Country: None (occurrence: None)
  Receive Date: 20090826
  Receipt Date: 20090819
  Transmission Date: 20100115
  Serious: Yes (Life-Threatening)
  Sender: FDA-Public Use
  Company Number: 2009JP004138

PATIENT
  Age: 72 Year
  Sex: Female
  Weight: 72 kg

DRUGS (7)
  1. FUNGUARD(MICAFUNGIN) INJECTION [Suspect]
     Indication: PNEUMONIA
     Dosage: 1:75 MG, UID/QD, IV DRIP; 50 MG, UID/QD, IV DRIP
     Route: 041
     Dates: start: 20090611, end: 20090615
  2. FUNGUARD(MICAFUNGIN) INJECTION [Suspect]
     Indication: PNEUMONIA
     Dosage: 1:75 MG, UID/QD, IV DRIP; 50 MG, UID/QD, IV DRIP
     Route: 041
     Dates: start: 20090619, end: 20090619
  3. MEROPEN (MEROPENEM) INJECTION [Concomitant]
  4. TARGOCID [Concomitant]
  5. ROMIKACIN (AMIKACIN SULFATE) INJECTION [Concomitant]
  6. MINOPEN (MINOCYCLINE HYDROCHLORIDE) INJECTION [Concomitant]
  7. GLOVENIN I (IMMUNOGLOBULIN HUMAN NORMAL) INJECTION [Concomitant]

REACTIONS (4)
  - ANAPHYLACTIC SHOCK [None]
  - DRUG HYPERSENSITIVITY [None]
  - HAEMOLYTIC ANAEMIA [None]
  - SEPSIS [None]
